FAERS Safety Report 18384271 (Version 7)
Quarter: 2021Q2

REPORT INFORMATION
  Report Type: Spontaneous
  Country: FR (occurrence: FR)
  Receive Date: 20201015
  Receipt Date: 20210520
  Transmission Date: 20210717
  Serious: Yes (Other)
  Sender: FDA-Public Use
  Company Number: NVSC2020FR271800

PATIENT
  Age: 28 Year
  Sex: Female

DRUGS (14)
  1. VOTUBIA [Suspect]
     Active Substance: EVEROLIMUS
     Indication: PRODUCT USED FOR UNKNOWN INDICATION
     Dosage: UNK
     Route: 065
  2. EPITOMAX [Suspect]
     Active Substance: TOPIRAMATE
     Dosage: 200 MILLIGRAM, ONCE A DAY IN THE MORNING
     Route: 065
  3. ZEBINIX [Suspect]
     Active Substance: ESLICARBAZEPINE ACETATE
     Indication: EPILEPSY
     Dosage: UNK
     Route: 048
     Dates: start: 2018
  4. LEXOMIL [Suspect]
     Active Substance: BROMAZEPAM
     Indication: HALLUCINATION
     Dosage: 0.5 DF (HALF TABLET)
     Route: 065
  5. PAROXETINE. [Suspect]
     Active Substance: PAROXETINE
     Dosage: 10 MG, QD
     Route: 048
     Dates: start: 20200907
  6. TERCIAN [Suspect]
     Active Substance: CYAMEMAZINE
     Indication: SCHIZOPHRENIA
     Dosage: 50 MG, QD
     Route: 048
     Dates: start: 2018
  7. EVEROLIMUS. [Suspect]
     Active Substance: EVEROLIMUS
     Indication: ANGIOMYOLIPOMA
     Dosage: 10 MILLIGRAM, DAILY
     Route: 048
     Dates: start: 2018
  8. PAROXETINE. [Suspect]
     Active Substance: PAROXETINE
     Indication: PRODUCT USED FOR UNKNOWN INDICATION
     Dosage: 20 MG, QD
     Route: 048
     Dates: start: 2018
  9. TERCIAN [Suspect]
     Active Substance: CYAMEMAZINE
     Dosage: 25 MG, QD
     Route: 048
     Dates: start: 202009
  10. EPITOMAX [Suspect]
     Active Substance: TOPIRAMATE
     Dosage: 100 MG, QD (IN THE MORNING)
     Route: 048
     Dates: start: 2018
  11. PAROXETINE. [Suspect]
     Active Substance: PAROXETINE
     Dosage: 5 MG, QD
     Route: 048
     Dates: start: 202009
  12. LEPTICUR [Suspect]
     Active Substance: TROPATEPINE HYDROCHLORIDE
     Indication: PRODUCT USED FOR UNKNOWN INDICATION
     Dosage: 10 MILLIGRAM, DAILY
     Route: 048
     Dates: start: 2018
  13. EPITOMAX [Suspect]
     Active Substance: TOPIRAMATE
     Indication: EPILEPSY
     Dosage: 200 MG, QD (IN THE MORNING)
     Route: 048
     Dates: start: 2018
  14. HALDOL [Suspect]
     Active Substance: HALOPERIDOL
     Indication: SCHIZOPHRENIA
     Dosage: 5 MILLIGRAM, 3 TIMES A DAY
     Route: 048
     Dates: start: 2018, end: 20210121

REACTIONS (5)
  - Galactorrhoea [Recovering/Resolving]
  - Intentional product use issue [Unknown]
  - Hyperprolactinaemia [Recovering/Resolving]
  - Drug level decreased [Not Recovered/Not Resolved]
  - Amenorrhoea [Recovering/Resolving]

NARRATIVE: CASE EVENT DATE: 202009
